FAERS Safety Report 6550149-2 (Version None)
Quarter: 2010Q1

REPORT INFORMATION
  Report Type: 
  Country: None (occurrence: None)
  Receive Date: 20100125
  Receipt Date: 20100120
  Transmission Date: 20100710
  Serious: Yes (Life-Threatening, Hospitalization)
  Sender: FDA-Public Use
  Company Number: JP-JNJFOC-20090809393

PATIENT
  Sex: Female
  Weight: 65 kg

DRUGS (8)
  1. DOXIL [Suspect]
     Indication: OVARIAN CANCER RECURRENT
     Dosage: CYCLE 1
     Route: 042
  2. DOXIL [Suspect]
     Dosage: CYCLE 2
     Route: 042
  3. RINDERON [Concomitant]
     Indication: PROPHYLAXIS
     Route: 048
  4. PYDOXAL [Concomitant]
     Indication: PROPHYLAXIS
     Route: 048
  5. MAGMITT [Concomitant]
     Route: 048
  6. BIOFERMIN [Concomitant]
     Route: 048
  7. TERRANAS [Concomitant]
     Route: 048
  8. VITANEURIN [Concomitant]
     Route: 048

REACTIONS (5)
  - MALAISE [None]
  - NEUTROPENIA [None]
  - PLATELET COUNT DECREASED [None]
  - PNEUMONIA [None]
  - PYREXIA [None]
